FAERS Safety Report 21056287 (Version 5)
Quarter: 2023Q2

REPORT INFORMATION
  Report Type: Report from Study
  Country: KR (occurrence: KR)
  Receive Date: 20220708
  Receipt Date: 20230412
  Transmission Date: 20230722
  Serious: Yes (Hospitalization, Other)
  Sender: FDA-Public Use
  Company Number: KR-ABBVIE-22K-090-4458112-00

PATIENT
  Age: 64 Year
  Sex: Female
  Weight: 59 kg

DRUGS (31)
  1. RINVOQ [Suspect]
     Active Substance: UPADACITINIB
     Indication: Rheumatoid arthritis
     Route: 048
     Dates: start: 20211207, end: 20220524
  2. NSAIDs-Celecoxib (Celebrex) 200mg [Concomitant]
     Indication: Rheumatoid arthritis
     Dates: start: 20220427, end: 20220524
  3. RHEUMATREX [Concomitant]
     Active Substance: METHOTREXATE SODIUM
     Indication: Rheumatoid arthritis
     Dates: start: 20201126, end: 20220103
  4. VICAFEROL PLUS TAB [Concomitant]
     Indication: Osteoporosis
     Route: 048
     Dates: start: 20210817, end: 20220524
  5. FOLIC ACID [Concomitant]
     Active Substance: FOLIC ACID
     Indication: Rheumatoid arthritis
     Route: 048
     Dates: start: 20200514
  6. FOLIC ACID [Concomitant]
     Active Substance: FOLIC ACID
     Indication: Rheumatoid arthritis
     Route: 048
     Dates: start: 20201126, end: 20220103
  7. YUHAN-ZID TAB 100mg [Concomitant]
     Indication: Latent tuberculosis
     Dosage: TIME INTERVAL: 0.33333333 WEEKS
     Route: 048
     Dates: start: 20211109, end: 20220207
  8. PREDNISOLONE [Concomitant]
     Active Substance: PREDNISOLONE
     Indication: Rheumatoid arthritis
     Dates: start: 20201126, end: 20220103
  9. MUCOSTA TAB 100mg [Concomitant]
     Indication: Gastrointestinal disorder prophylaxis
     Route: 048
     Dates: start: 20200514, end: 20220524
  10. VITAFEROL [Concomitant]
     Indication: Rheumatoid arthritis
     Route: 048
     Dates: start: 20210817
  11. NSAIDs-TRIDOL CAP 50mg [Concomitant]
     Indication: Rheumatoid arthritis
     Dates: start: 20201126, end: 20220207
  12. TRAMADOL HYDROCHLORIDE [Concomitant]
     Active Substance: TRAMADOL HYDROCHLORIDE
     Indication: Rheumatoid arthritis
     Route: 048
     Dates: start: 20201126, end: 20220207
  13. YUHAN METHOTREXATE [Concomitant]
     Indication: Rheumatoid arthritis
     Route: 048
     Dates: start: 20200514
  14. RIFODEX TAB 600mg [Concomitant]
     Indication: Latent tuberculosis
     Route: 048
     Dates: start: 20211109, end: 20220207
  15. PREDNISOLONE [Concomitant]
     Active Substance: PREDNISOLONE
     Indication: Rheumatoid arthritis
     Route: 048
     Dates: start: 20200514
  16. REBAMIPIDE [Concomitant]
     Active Substance: REBAMIPIDE
     Indication: Rheumatoid arthritis
     Route: 048
     Dates: start: 20200514
  17. REBAMIPIDE [Concomitant]
     Active Substance: REBAMIPIDE
     Indication: Rheumatoid arthritis
     Route: 048
     Dates: start: 20201126
  18. TWYNSTA TAB 40/5mg [Concomitant]
     Indication: Hypertension
     Route: 048
     Dates: start: 20191107, end: 20211220
  19. LYRICA [Concomitant]
     Active Substance: PREGABALIN
     Indication: Rheumatoid arthritis
     Dates: start: 20200514
  20. LYRICA [Concomitant]
     Active Substance: PREGABALIN
     Indication: Rheumatoid arthritis
     Route: 048
     Dates: start: 20201126
  21. Steroids-Prednisolone [Concomitant]
     Indication: Rheumatoid arthritis
     Dates: start: 20200611, end: 20220103
  22. Steroids-Prednisolone [Concomitant]
     Indication: Rheumatoid arthritis
     Dates: start: 20200514, end: 20220610
  23. TRAMADOL HYDROCHLORIDE [Concomitant]
     Active Substance: TRAMADOL HYDROCHLORIDE
     Indication: Product used for unknown indication
     Route: 048
     Dates: start: 20200514
  24. csDMARDs-Methotrexate (Rheumatrex. Folex) [Concomitant]
     Indication: Rheumatoid arthritis
     Dates: start: 20200514, end: 20220103
  25. csDMARDs-Methotrexate (Rheumatrex. Folex) [Concomitant]
     Indication: Rheumatoid arthritis
     Dates: start: 20220705
  26. OMACOR [Concomitant]
     Active Substance: OMEGA-3-ACID ETHYL ESTERS
     Indication: Rheumatoid arthritis
     Route: 058
     Dates: start: 20220104, end: 20220207
  27. PROLIA PREFILLED SYRINGE [Concomitant]
     Indication: Osteoporosis
     Route: 058
     Dates: start: 20220104, end: 20220104
  28. ZANAPAM [Concomitant]
     Indication: Rheumatoid arthritis
     Route: 048
     Dates: start: 20220104, end: 20220427
  29. ZANAPAM TAB 0.25mg [Concomitant]
     Indication: Prophylaxis
     Route: 048
     Dates: start: 20220104, end: 20220427
  30. LYRICA CAP 75mg [Concomitant]
     Indication: Rheumatoid arthritis
     Dates: start: 20201126, end: 20220524
  31. FOLIC ACID SINIL TAB 1mg [Concomitant]
     Indication: Rheumatoid arthritis
     Route: 048
     Dates: start: 20200514, end: 20220103

REACTIONS (1)
  - Cerebrovascular accident [Recovering/Resolving]

NARRATIVE: CASE EVENT DATE: 20220525
